FAERS Safety Report 8810455 (Version 1)
Quarter: 2012Q4

REPORT INFORMATION
  Report Type: Report from Study
  Country: JP (occurrence: JP)
  Receive Date: 20120927
  Receipt Date: 20120927
  Transmission Date: 20130627
  Serious: Yes (Death)
  Sender: FDA-Public Use
  Company Number: JP-009507513-1206USA00169

PATIENT
  Age: 74 Year
  Sex: Male

DRUGS (21)
  1. ZOLINZA CAPSULES 100MG [Suspect]
     Indication: ADULT T-CELL LYMPHOMA/LEUKAEMIA
     Dosage: 300 mg, qd
     Route: 048
     Dates: start: 20120301, end: 20120307
  2. ZOLINZA CAPSULES 100MG [Suspect]
     Dosage: 300 mg, qd
     Route: 048
     Dates: start: 20120314, end: 20120318
  3. ZOLINZA CAPSULES 100MG [Suspect]
     Dosage: 300 mg, qd
     Route: 048
     Dates: start: 20120322, end: 20120326
  4. ZOLINZA CAPSULES 100MG [Suspect]
     Dosage: 300 mg, qd
     Route: 048
     Dates: start: 20120329, end: 20120402
  5. ZOLINZA CAPSULES 100MG [Suspect]
     Dosage: 300 mg, qd
     Route: 048
     Dates: start: 20120405, end: 20120408
  6. ZOLINZA CAPSULES 100MG [Suspect]
     Dosage: 300 mg, qd
     Route: 048
     Dates: start: 20120425, end: 20120430
  7. BAYASPIRIN [Concomitant]
     Indication: MYOCARDIAL INFARCTION
     Dosage: 100 mg, qd
     Route: 048
     Dates: end: 20120514
  8. FLUCONAZOLE [Concomitant]
     Indication: PROPHYLAXIS
     Dosage: 100 mg, qd
     Route: 048
     Dates: end: 20120514
  9. DAIPHEN [Concomitant]
     Indication: ANTIFUNGAL PROPHYLAXIS
     Dosage: 0.5 g, qd
     Route: 048
     Dates: end: 20120514
  10. PARIET [Concomitant]
     Indication: GASTRIC ULCER
     Dosage: 10 mg, qd
     Route: 048
     Dates: end: 20120514
  11. GLIMEPIRIDE [Concomitant]
     Indication: DIABETES MELLITUS
     Dosage: 1 mg, qd
     Route: 048
     Dates: end: 20120514
  12. LUPRAC [Concomitant]
     Indication: DIABETIC NEPHROPATHY
     Dosage: 8 mg, qd
     Route: 048
     Dates: end: 20120514
  13. ALLOPURINOL [Concomitant]
     Indication: HYPERURICAEMIA
     Dosage: 200 mg, bid
     Route: 048
  14. LYRICA [Concomitant]
     Indication: DIABETIC NEUROPATHY
     Dosage: 350 mg, bid
     Route: 048
     Dates: end: 20120514
  15. BENET [Concomitant]
     Indication: OSTEOPOROSIS
     Dosage: 17.5 mg, qw
     Route: 048
     Dates: end: 20120329
  16. LIPITOR [Concomitant]
     Indication: HYPERCHOLESTEROLAEMIA
     Dosage: 5 mg, qd
     Route: 048
     Dates: end: 20120514
  17. FUROSEMIDE [Concomitant]
     Indication: CARDIAC FAILURE
     Dosage: 40 mg, bid
     Route: 051
     Dates: start: 20120514, end: 20120517
  18. CEFEPIME HYDROCHLORIDE [Concomitant]
     Route: 042
  19. FUNGUARD [Concomitant]
     Route: 041
  20. PREDOPA [Concomitant]
     Route: 041
  21. PREDONINE [Concomitant]
     Indication: ADULT T-CELL LYMPHOMA/LEUKAEMIA
     Dosage: 1MG-20 mg, qd
     Route: 048
     Dates: start: 20101111, end: 20120309

REACTIONS (9)
  - Cardiac failure [Fatal]
  - Liver disorder [Fatal]
  - Pneumonia [Fatal]
  - Renal impairment [Recovered/Resolved]
  - Blood bilirubin increased [Not Recovered/Not Resolved]
  - Platelet count decreased [Recovered/Resolved]
  - Platelet count decreased [Recovered/Resolved]
  - Platelet count decreased [Recovered/Resolved]
  - Platelet count decreased [Not Recovered/Not Resolved]
